FAERS Safety Report 10226285 (Version 1)
Quarter: 2014Q2

REPORT INFORMATION
  Report Type: Spontaneous
  Country: US (occurrence: US)
  Receive Date: 20140609
  Receipt Date: 20140609
  Transmission Date: 20141212
  Serious: No
  Sender: FDA-Public Use
  Company Number: US-009507513-1405USA013664

PATIENT
  Age: 66 Year
  Sex: Male
  Weight: 86.17 kg

DRUGS (6)
  1. CLARITIN-D-24 [Suspect]
     Indication: SEASONAL ALLERGY
     Dosage: 10 MG, ONCE
     Route: 048
     Dates: start: 20140517, end: 20140517
  2. CLARITIN-D-24 [Suspect]
     Indication: NASAL CONGESTION
  3. CLARITIN-D-24 [Suspect]
     Indication: SINUS HEADACHE
  4. CLARITIN-D-24 [Suspect]
     Indication: RHINORRHOEA
  5. CLARITIN-D-24 [Suspect]
     Indication: EYE PRURITUS
  6. CLARITIN-D-24 [Suspect]
     Indication: THROAT IRRITATION

REACTIONS (7)
  - Dehydration [Recovered/Resolved]
  - Flushing [Recovered/Resolved]
  - Anxiety [Recovered/Resolved]
  - Polyuria [Recovered/Resolved]
  - Nausea [Recovered/Resolved]
  - Weight decreased [Recovered/Resolved]
  - Pruritus [Recovered/Resolved]
